FAERS Safety Report 6093346-5 (Version None)
Quarter: 2009Q1

REPORT INFORMATION
  Report Type: 
  Country: None (occurrence: None)
  Receive Date: 20090226
  Receipt Date: 20080911
  Transmission Date: 20090719
  Serious: No
  Sender: FDA-Public Use
  Company Number: A0747072A

PATIENT
  Age: 45 Year
  Sex: Male

DRUGS (3)
  1. ZIAGEN [Suspect]
     Indication: HIV INFECTION
     Dosage: 300MG TWICE PER DAY
     Route: 048
     Dates: start: 20080908
  2. KALETRA [Concomitant]
  3. SUSTIVA [Concomitant]

REACTIONS (1)
  - OROPHARYNGEAL PAIN [None]
